FAERS Safety Report 8389852-0 (Version None)
Quarter: 2012Q2

REPORT INFORMATION
  Report Type: 
  Country: None (occurrence: None)
  Receive Date: 20120529
  Receipt Date: 20120517
  Transmission Date: 20120825
  Serious: Yes (Hospitalization, Other)
  Sender: FDA-Public Use
  Company Number: GB-BAYER-2012-052098

PATIENT
  Sex: Female

DRUGS (1)
  1. MIRENA [Suspect]
     Dosage: 20 MCG/24HR, CONT
     Route: 015
     Dates: start: 20070101, end: 20080702

REACTIONS (10)
  - ASTHENIA [None]
  - BLOOD PRESSURE DECREASED [None]
  - SHOCK HAEMORRHAGIC [None]
  - NAUSEA [None]
  - BLOOD COUNT ABNORMAL [None]
  - VAGINAL HAEMORRHAGE [None]
  - FALL [None]
  - PALLOR [None]
  - CONVULSION [None]
  - LOSS OF CONSCIOUSNESS [None]
